FAERS Safety Report 4568307-5 (Version None)
Quarter: 2005Q1

REPORT INFORMATION
  Report Type: 
  Country: None (occurrence: None)
  Receive Date: 20050202
  Receipt Date: 20000722
  Transmission Date: 20050727
  Serious: Yes (Other)
  Sender: FDA-Public Use
  Company Number: TH-GLAXOSMITHKLINE-B0369447A

PATIENT
  Age: 46 Year
  Sex: Female

DRUGS (5)
  1. AVANDIA [Suspect]
     Dosage: 4MG PER DAY
     Dates: start: 20000425
  2. DIABINESE [Concomitant]
     Dosage: 2TAB PER DAY
  3. GLUCOPHAGE [Concomitant]
     Dosage: 850MG THREE TIMES PER DAY
  4. ENARIL [Concomitant]
     Indication: HYPERTENSION
     Dosage: .5TAB PER DAY
  5. LIPANTHYL [Concomitant]
     Dosage: 200MG PER DAY

REACTIONS (2)
  - GUILLAIN-BARRE SYNDROME [None]
  - MUSCULAR WEAKNESS [None]
